FAERS Safety Report 19509514 (Version 1)
Quarter: 2021Q3

REPORT INFORMATION
  Report Type: Spontaneous
  Country: RO (occurrence: RO)
  Receive Date: 20210708
  Receipt Date: 20210708
  Transmission Date: 20211014
  Serious: Yes (Other)
  Sender: FDA-Public Use
  Company Number: RO-009507513-2107ROM001282

PATIENT
  Age: 55 Year

DRUGS (2)
  1. KEYTRUDA [Suspect]
     Active Substance: PEMBROLIZUMAB
     Dosage: 20 CYCLES
     Dates: start: 2020
  2. PEMETREXED. [Suspect]
     Active Substance: PEMETREXED
     Dosage: UNK
     Dates: start: 2020

REACTIONS (3)
  - Endocarditis staphylococcal [Unknown]
  - Therapy partial responder [Unknown]
  - Asthenia [Unknown]
